FAERS Safety Report 9448828 (Version 1)
Quarter: 2013Q3

REPORT INFORMATION
  Report Type: Spontaneous
  Country: CA (occurrence: CA)
  Receive Date: 20130808
  Receipt Date: 20130808
  Transmission Date: 20140515
  Serious: Yes (Other)
  Sender: FDA-Public Use
  Company Number: CA-ROCHE-1256200

PATIENT
  Age: 57 Year
  Sex: Male
  Weight: 89.8 kg

DRUGS (6)
  1. XELODA [Suspect]
     Indication: COLON CANCER
     Dosage: THERAPY START DATE: 17/JUL/2013
     Route: 048
  2. METFORMIN [Concomitant]
  3. GLICLAZIDE [Concomitant]
  4. NEXIUM [Concomitant]
  5. ADALAT [Concomitant]
  6. LISINOPRIL [Concomitant]

REACTIONS (7)
  - Choking sensation [Not Recovered/Not Resolved]
  - Paraesthesia oral [Not Recovered/Not Resolved]
  - Temperature intolerance [Not Recovered/Not Resolved]
  - Paraesthesia [Not Recovered/Not Resolved]
  - Sensory loss [Not Recovered/Not Resolved]
  - Nausea [Recovering/Resolving]
  - Fatigue [Recovering/Resolving]
